FAERS Safety Report 23675630 (Version 2)
Quarter: 2024Q2

REPORT INFORMATION
  Report Type: Report from Study
  Country: US (occurrence: US)
  Receive Date: 20240327
  Receipt Date: 20240510
  Transmission Date: 20240716
  Serious: Yes (Hospitalization, Other)
  Sender: FDA-Public Use
  Company Number: US-JAZZ PHARMACEUTICALS-2022-US-030033

PATIENT
  Age: 34 Year
  Sex: Female
  Weight: 82.54 kg

DRUGS (4)
  1. EPIDIOLEX [Suspect]
     Active Substance: CANNABIDIOL
     Indication: Lennox-Gastaut syndrome
     Dosage: 8.5 MILLILITER, BID
     Dates: start: 20210213
  2. EPIDIOLEX [Suspect]
     Active Substance: CANNABIDIOL
     Dosage: 17 MILLILITER
     Route: 048
     Dates: start: 202102
  3. EPIDIOLEX [Suspect]
     Active Substance: CANNABIDIOL
     Dosage: 8.5 MILLILITER, BID
     Route: 048
     Dates: start: 202001
  4. EPIDIOLEX [Suspect]
     Active Substance: CANNABIDIOL
     Dosage: 8.5 MILLILITER, BID
     Route: 048
     Dates: start: 202001

REACTIONS (4)
  - Generalised tonic-clonic seizure [Recovered/Resolved]
  - Seizure [Unknown]
  - Seizure [Unknown]
  - Alopecia [Unknown]

NARRATIVE: CASE EVENT DATE: 20220729
